FAERS Safety Report 24411695 (Version 1)
Quarter: 2024Q4

REPORT INFORMATION
  Report Type: Spontaneous
  Country: US (occurrence: US)
  Receive Date: 20241008
  Receipt Date: 20241008
  Transmission Date: 20250115
  Serious: Yes (Hospitalization, Other)
  Sender: AMNEAL
  Company Number: US-AMNEAL PHARMACEUTICALS-2024-AMRX-03632

PATIENT
  Age: 86 Year
  Sex: Male

DRUGS (2)
  1. FYLNETRA [Suspect]
     Active Substance: PEGFILGRASTIM-PBBK
     Indication: Chronic myelomonocytic leukaemia
     Dosage: DECITABINE (RECENT 5 DAYS CYCLE) FOLLOWED BY ONE DOSE OF PEGFILGRASTIM ON DAY 6 (THE DAY PRIOR TO AD
     Route: 065
  2. DECITABINE [Concomitant]
     Active Substance: DECITABINE
     Indication: Chronic myelomonocytic leukaemia
     Dosage: DECITABINE (RECENT 5 DAYS CYCLE) FOLLOWED BY ONE DOSE OF PEGFILGRASTIM ON DAY 6 (THE DAY PRIOR TO AD
     Route: 065

REACTIONS (3)
  - Acute myocardial infarction [Not Recovered/Not Resolved]
  - Neutrophilia [Not Recovered/Not Resolved]
  - Encephalopathy [Not Recovered/Not Resolved]
